FAERS Safety Report 11720101 (Version 8)
Quarter: 2020Q4

REPORT INFORMATION
  Report Type: Other
  Country: GB (occurrence: GB)
  Receive Date: 20151110
  Receipt Date: 20201117
  Transmission Date: 20210113
  Serious: Yes (Other)
  Sender: FDA-Public Use
  Company Number: GB-ROCHE-1567433

PATIENT
  Age: 54 Year
  Sex: Male

DRUGS (3)
  1. ROACTEMRA [Suspect]
     Active Substance: TOCILIZUMAB
     Indication: RHEUMATOID ARTHRITIS
     Route: 058
     Dates: start: 20141017
  2. SALAZOPYRIN [Concomitant]
     Active Substance: SULFASALAZINE
  3. METFORMIN [Concomitant]
     Active Substance: METFORMIN HYDROCHLORIDE
     Route: 065

REACTIONS (5)
  - Pneumonia [Unknown]
  - Lung disorder [Unknown]
  - Lung cyst [Unknown]
  - Pulmonary oedema [Unknown]
  - Lower respiratory tract infection [Recovering/Resolving]
